FAERS Safety Report 5629268-0 (Version None)
Quarter: 2008Q1

REPORT INFORMATION
  Report Type: 
  Country: None (occurrence: None)
  Receive Date: 20080217
  Receipt Date: 20080205
  Transmission Date: 20080703
  Serious: No
  Sender: FDA-Public Use
  Company Number: US-BAXTER-2008BH000908

PATIENT
  Age: 51 Year
  Sex: Male
  Weight: 86 kg

DRUGS (7)
  1. HEPARIN SODIUM [Suspect]
     Indication: PROPHYLAXIS
     Route: 033
     Dates: start: 20070101
  2. LABETALOL HCL [Concomitant]
     Indication: BLOOD PRESSURE
     Route: 065
     Dates: start: 19990101
  3. DOXAZOSIN MESYLATE [Concomitant]
     Indication: BLOOD PRESSURE
     Route: 065
     Dates: start: 19990101
  4. CHROMAGEN [Concomitant]
     Indication: DRUG USE FOR UNKNOWN INDICATION
     Dosage: DOSE UNIT:UNKNOWN
     Route: 065
  5. NEPHRO-VITE RX [Concomitant]
     Indication: VITAMIN SUPPLEMENTATION
     Dosage: DOSE UNIT:UNKNOWN
     Route: 065
  6. PRAVACHOL [Concomitant]
     Route: 065
     Dates: start: 20000101
  7. QUINAPRIL HCL [Concomitant]
     Indication: BLOOD PRESSURE
     Route: 065

REACTIONS (2)
  - DRY MOUTH [None]
  - THIRST [None]
